FAERS Safety Report 10207244 (Version 1)
Quarter: 2014Q2

REPORT INFORMATION
  Report Type: Spontaneous
  Country: US (occurrence: US)
  Receive Date: 20140530
  Receipt Date: 20140530
  Transmission Date: 20141212
  Serious: No
  Sender: FDA-Public Use
  Company Number: US-GLAXOSMITHKLINE-A1026015A

PATIENT
  Age: 69 Year
  Sex: Female

DRUGS (2)
  1. VENTOLIN HFA [Suspect]
     Indication: RESPIRATORY DISORDER
     Dosage: 90MCG UNKNOWN
     Route: 065
     Dates: start: 20100903
  2. ADVAIR [Concomitant]
     Dates: start: 20090120

REACTIONS (3)
  - Incorrect dose administered [Unknown]
  - Therapy cessation [Unknown]
  - Drug administration error [Unknown]
